FAERS Safety Report 4963863-7 (Version None)
Quarter: 2006Q1

REPORT INFORMATION
  Report Type: 
  Country: None (occurrence: None)
  Receive Date: 20060330
  Receipt Date: 20060310
  Transmission Date: 20060701
  Serious: Yes (Hospitalization)
  Sender: FDA-Public Use
  Company Number: FR200603002754

PATIENT
  Age: 83 Year
  Sex: Female

DRUGS (9)
  1. FORTEO [Suspect]
     Indication: OSTEOPOROSIS
     Dosage: 20 UG, DAILY (1/D), SUBCUTANEOUS
     Route: 058
     Dates: start: 20051001, end: 20060228
  2. FORTEO [Suspect]
     Indication: OSTEOPOROSIS
     Dosage: 20 UG, DAILY (1/D), SUBCUTANEOUS
     Route: 058
     Dates: start: 20060308
  3. FORTEO [Concomitant]
  4. COZAAR [Concomitant]
  5. DAFLON 500 (DIOSMIN, HESPERIDIN) TABLET [Concomitant]
  6. ACETAMINOPHEN [Concomitant]
  7. ARICEPT [Concomitant]
  8. ATARAX [Concomitant]
  9. FERROUS SULFATE TAB [Concomitant]

REACTIONS (5)
  - CEREBROVASCULAR ACCIDENT [None]
  - DIZZINESS [None]
  - HYPOAESTHESIA [None]
  - PRURITUS [None]
  - SENSORY LOSS [None]
